FAERS Safety Report 7377939-0 (Version None)
Quarter: 2011Q1

REPORT INFORMATION
  Report Type: 
  Country: None (occurrence: None)
  Receive Date: 20110328
  Receipt Date: 20110318
  Transmission Date: 20110831
  Serious: No
  Sender: FDA-Public Use
  Company Number: AR-PFIZER INC-2011038478

PATIENT
  Age: 54 Year
  Sex: Female
  Weight: 67 kg

DRUGS (3)
  1. RAPAMUNE [Suspect]
     Indication: RENAL TRANSPLANT
     Dosage: 100 MG, 4X/DAY
     Route: 048
     Dates: start: 20070901, end: 20100901
  2. CORTICOSTEROIDS [Concomitant]
     Dosage: UNK
     Route: 048
     Dates: start: 20060101
  3. MYCOPHENOLIC ACID [Concomitant]
     Dosage: UNK
     Route: 048
     Dates: start: 20060101

REACTIONS (4)
  - TOXICITY TO VARIOUS AGENTS [None]
  - SWELLING FACE [None]
  - FLUID RETENTION [None]
  - WHITE BLOOD CELL COUNT DECREASED [None]
